FAERS Safety Report 20212322 (Version 1)
Quarter: 2021Q4

REPORT INFORMATION
  Report Type: Spontaneous
  Country: NL (occurrence: NL)
  Receive Date: 20211221
  Receipt Date: 20211221
  Transmission Date: 20220303
  Serious: Yes (Hospitalization, Other)
  Sender: FDA-Public Use
  Company Number: None

PATIENT
  Sex: Female
  Weight: 25 kg

DRUGS (2)
  1. PROPRANOLOL [Suspect]
     Active Substance: PROPRANOLOL HYDROCHLORIDE
     Indication: Wolff-Parkinson-White syndrome
     Dosage: UNK
  2. PROPRANOLOL [Suspect]
     Active Substance: PROPRANOLOL HYDROCHLORIDE
     Indication: Wolff-Parkinson-White syndrome
     Dosage: 3X 2,5 ML, PROPRANOLOL DRANK
     Route: 065
     Dates: start: 2019

REACTIONS (6)
  - Bradycardia [Unknown]
  - Product use issue [Unknown]
  - Hypoglycaemia [Unknown]
  - Product use in unapproved indication [Unknown]
  - Urinary incontinence [Not Recovered/Not Resolved]
  - Off label use [Unknown]
